FAERS Safety Report 24575263 (Version 1)
Quarter: 2024Q4

REPORT INFORMATION
  Report Type: Spontaneous
  Country: US (occurrence: None)
  Receive Date: 20241101
  Receipt Date: 20241101
  Transmission Date: 20250114
  Serious: Yes (Hospitalization)
  Sender: Public
  Company Number: None

PATIENT
  Sex: Male

DRUGS (1)
  1. CAPECITABINE [Suspect]
     Active Substance: CAPECITABINE
     Indication: Colon cancer
     Dosage: OTHER FREQUENCY : 4TABLETSBYMOUTH2TIMESADAYAFTERMEALS;?
     Route: 048
     Dates: start: 202405

REACTIONS (2)
  - Cardiac disorder [None]
  - Therapy cessation [None]
